FAERS Safety Report 7878544-X (Version None)
Quarter: 2011Q4

REPORT INFORMATION
  Report Type: 
  Country: None (occurrence: None)
  Receive Date: 20111014
  Receipt Date: 20110517
  Transmission Date: 20120403
  Serious: Yes (Hospitalization)
  Sender: FDA-Public Use
  Company Number: 10000820982

PATIENT
  Sex: Female

DRUGS (1)
  1. LEXAPRO [Suspect]

REACTIONS (3)
  - ASTHENIA [None]
  - CONFUSIONAL STATE [None]
  - HYPONATRAEMIA [None]
